FAERS Safety Report 9465631 (Version 2)
Quarter: 2013Q4

REPORT INFORMATION
  Report Type: Spontaneous
  Country: CO (occurrence: CO)
  Receive Date: 20130820
  Receipt Date: 20131104
  Transmission Date: 20140711
  Serious: No
  Sender: FDA-Public Use
  Company Number: CO-JNJFOC-20130806278

PATIENT
  Age: 31 Year
  Sex: Female
  Weight: 97 kg

DRUGS (2)
  1. DUROGESIC [Suspect]
     Indication: AMYOTROPHIC LATERAL SCLEROSIS
     Route: 062
     Dates: start: 20130713
  2. PREGABALIN [Concomitant]
     Route: 065

REACTIONS (9)
  - Insomnia [Unknown]
  - Somnolence [Unknown]
  - Pruritus [Unknown]
  - Nausea [Unknown]
  - Crying [Unknown]
  - Product quality issue [Unknown]
  - Product adhesion issue [Unknown]
  - Wrong technique in drug usage process [Unknown]
  - Drug dose omission [Unknown]
